FAERS Safety Report 22006090 (Version 1)
Quarter: 2023Q1

REPORT INFORMATION
  Report Type: Spontaneous
  Country: CN (occurrence: CN)
  Receive Date: 20230217
  Receipt Date: 20230217
  Transmission Date: 20230418
  Serious: Yes (Other)
  Sender: FDA-Public Use
  Company Number: CN-009507513-2302CHN003470

PATIENT
  Sex: Male
  Weight: 70 kg

DRUGS (1)
  1. CILASTATIN SODIUM\IMIPENEM [Suspect]
     Active Substance: CILASTATIN SODIUM\IMIPENEM
     Indication: Symptomatic treatment
     Dosage: 1 G TID
     Route: 041
     Dates: start: 20221129, end: 20221203

REACTIONS (4)
  - Pneumonia [Unknown]
  - Chronic hepatitis B [Unknown]
  - Hypertension [Unknown]
  - Drug hypersensitivity [Unknown]
